FAERS Safety Report 22174124 (Version 1)
Quarter: 2023Q2

REPORT INFORMATION
  Report Type: Spontaneous
  Country: CN (occurrence: CN)
  Receive Date: 20230405
  Receipt Date: 20230405
  Transmission Date: 20230722
  Serious: Yes (Hospitalization)
  Sender: FDA-Public Use
  Company Number: CN-JNJFOC-20230375193

PATIENT
  Sex: Male

DRUGS (1)
  1. RHINOCORT AQUA [Suspect]
     Active Substance: BUDESONIDE
     Indication: Rhinitis
     Dosage: USE AS PER INSTRUCTIONS ONLY USE ONCE AFTER PURCHASE
     Route: 045
     Dates: start: 20230328

REACTIONS (2)
  - Influenza [Not Recovered/Not Resolved]
  - Suspected counterfeit product [Unknown]
